FAERS Safety Report 24030989 (Version 1)
Quarter: 2024Q2

REPORT INFORMATION
  Report Type: Spontaneous
  Country: US (occurrence: US)
  Receive Date: 20240628
  Receipt Date: 20240628
  Transmission Date: 20240715
  Serious: No
  Sender: FDA-Public Use
  Company Number: US-002147023-NVSC2024US134510

PATIENT
  Sex: Male

DRUGS (1)
  1. AFINITOR [Suspect]
     Active Substance: EVEROLIMUS
     Indication: Product used for unknown indication
     Dosage: 10 MG (EVERY OTHER DAY)
     Route: 065
     Dates: start: 20240602

REACTIONS (3)
  - Headache [Unknown]
  - Fatigue [Unknown]
  - Oral pain [Unknown]
